FAERS Safety Report 6381437-0 (Version None)
Quarter: 2009Q3

REPORT INFORMATION
  Report Type: 
  Country: None (occurrence: None)
  Receive Date: 20090924
  Receipt Date: 20090915
  Transmission Date: 20100115
  Serious: Yes (Other)
  Sender: FDA-Public Use
  Company Number: 2009AL006121

PATIENT
  Age: 65 Year
  Sex: Male

DRUGS (3)
  1. AMLODIPINE BESYLATE [Suspect]
     Indication: HYPERTENSION
     Dosage: 5 MG;QD;PO
     Route: 048
     Dates: start: 20090602, end: 20090902
  2. COZAAR [Concomitant]
  3. SIMVASTATIN [Concomitant]

REACTIONS (1)
  - ATRIAL FIBRILLATION [None]
